FAERS Safety Report 19881031 (Version 1)
Quarter: 2021Q3

REPORT INFORMATION
  Report Type: Report from Study
  Country: None (occurrence: DE)
  Receive Date: 20210924
  Receipt Date: 20210924
  Transmission Date: 20211014
  Serious: Yes (Hospitalization)
  Sender: FDA-Public Use
  Company Number: DE-ABBVIE-18P-062-3098536-00

PATIENT
  Age: 52 Year
  Sex: Male
  Weight: 68 kg

DRUGS (18)
  1. VINCRISTINE [Concomitant]
     Active Substance: VINCRISTINE
     Indication: MANTLE CELL LYMPHOMA
     Dosage: DOSAGE FORM: UNSPECIFIED
     Route: 065
     Dates: start: 20170208, end: 20170526
  2. DEXAMETHASONE. [Concomitant]
     Active Substance: DEXAMETHASONE
     Indication: MANTLE CELL LYMPHOMA
     Dosage: DOSAGE FORM: UNSPECIFIED
     Route: 065
     Dates: start: 20170208, end: 20170526
  3. RITUXIMAB. [Concomitant]
     Active Substance: RITUXIMAB
     Indication: MANTLE CELL LYMPHOMA
     Dosage: DOSAGE FORM: UNSPECIFIED
     Route: 065
     Dates: start: 20170208, end: 20170526
  4. CISPLATIN. [Concomitant]
     Active Substance: CISPLATIN
     Indication: MANTLE CELL LYMPHOMA
     Dosage: DOSAGE FORM: UNSPECIFIED
     Route: 065
     Dates: start: 20170208, end: 20170526
  5. CYCLOPHOSPHAMIDE. [Concomitant]
     Active Substance: CYCLOPHOSPHAMIDE
     Indication: MANTLE CELL LYMPHOMA
     Dosage: DOSAGE FORM: UNSPECIFIED
     Route: 065
     Dates: start: 20170208, end: 20170526
  6. PANTOPRAZOLE [Concomitant]
     Active Substance: PANTOPRAZOLE
     Indication: PROPHYLAXIS AGAINST GASTROINTESTINAL ULCER
     Dosage: DOSAGE FORM: UNSPECIFIED
     Route: 065
     Dates: start: 20170207
  7. MELPHALAN. [Concomitant]
     Active Substance: MELPHALAN
     Indication: MANTLE CELL LYMPHOMA
     Dosage: DOSAGE FORM: UNSPECIFIED
     Route: 065
     Dates: start: 20170622, end: 20170627
  8. DOXORUBICIN [Concomitant]
     Active Substance: DOXORUBICIN
     Indication: MANTLE CELL LYMPHOMA
     Dosage: DOSAGE FORM: UNSPECIFIED
     Route: 065
     Dates: start: 20170208, end: 20170526
  9. PREDNISOLONE. [Concomitant]
     Active Substance: PREDNISOLONE
     Indication: MANTLE CELL LYMPHOMA
     Dosage: DOSAGE FORM: UNSPECIFIED
     Route: 065
     Dates: start: 20170208, end: 20170526
  10. CYTARABINE. [Concomitant]
     Active Substance: CYTARABINE
     Indication: MANTLE CELL LYMPHOMA
     Dosage: DOSAGE FORM: UNSPECIFIED
     Route: 065
     Dates: start: 20170622, end: 20170627
  11. METAMIZOLE [Concomitant]
     Active Substance: METAMIZOLE
     Indication: PYREXIA
     Dosage: DOSAGE FORM: UNSPECIFIED
     Route: 065
     Dates: start: 20180305, end: 20180509
  12. CHOLECALCIFEROL [Concomitant]
     Active Substance: CHOLECALCIFEROL
     Indication: VITAMIN D ABNORMAL
     Dosage: DOSAGE FORM: UNSPECIFIED
     Route: 065
     Dates: start: 20170323
  13. IBRUTINIB [Suspect]
     Active Substance: IBRUTINIB
     Indication: MANTLE CELL LYMPHOMA
     Route: 048
     Dates: start: 20170209, end: 20180309
  14. SULFAMETHOXAZOLE [Concomitant]
     Active Substance: SULFAMETHOXAZOLE
     Indication: INFECTION PROPHYLAXIS
     Dosage: DOSAGE FORM: UNSPECIFIED
     Route: 065
  15. TRIMETHOPRIM. [Concomitant]
     Active Substance: TRIMETHOPRIM
     Indication: INFECTION PROPHYLAXIS
     Dosage: DOSAGE FORM: UNSPECIFIED
     Route: 065
     Dates: start: 20170322
  16. CARMUSTINE. [Concomitant]
     Active Substance: CARMUSTINE
     Indication: MANTLE CELL LYMPHOMA
     Dosage: DOSAGE FORM: UNSPECIFIED
     Route: 065
     Dates: start: 20170622, end: 20170627
  17. CYTARABINE. [Concomitant]
     Active Substance: CYTARABINE
     Indication: MANTLE CELL LYMPHOMA
     Dosage: DOSAGE FORM: UNSPECIFIED
     Route: 065
     Dates: start: 20170208, end: 20170526
  18. ETOPOSIDE. [Concomitant]
     Active Substance: ETOPOSIDE
     Indication: MANTLE CELL LYMPHOMA
     Dosage: DOSAGE FORM: UNSPECIFIED
     Route: 065
     Dates: start: 20170622, end: 20170627

REACTIONS (1)
  - Febrile neutropenia [Recovered/Resolved]

NARRATIVE: CASE EVENT DATE: 20180309
